FAERS Safety Report 6161065-2 (Version None)
Quarter: 2009Q2

REPORT INFORMATION
  Report Type: 
  Country: None (occurrence: None)
  Receive Date: 20090420
  Receipt Date: 20090408
  Transmission Date: 20091009
  Serious: Yes (Hospitalization)
  Sender: FDA-Public Use
  Company Number: JP-PFIZER INC-2009187863

PATIENT

DRUGS (2)
  1. IDAMYCIN [Suspect]
     Dosage: UNK
     Route: 042
  2. CYLOCIDE [Suspect]
     Route: 042

REACTIONS (1)
  - PAIN [None]
